FAERS Safety Report 8863184 (Version 4)
Quarter: 2016Q2

REPORT INFORMATION
  Report Type: Report from Study
  Country: JP (occurrence: JP)
  Receive Date: 20121026
  Receipt Date: 20160513
  Transmission Date: 20160815
  Serious: Yes (Death, Hospitalization)
  Sender: FDA-Public Use
  Company Number: JP-009507513-2006SP007996

PATIENT
  Age: 51 Year
  Sex: Female
  Weight: 43 kg

DRUGS (67)
  1. TEMOZOLOMIDE. [Suspect]
     Active Substance: TEMOZOLOMIDE
     Dosage: 150 MG/M2, ACTUAL DAILY DOSE 200 MG
     Route: 048
     Dates: start: 20071001, end: 20071004
  2. TEMOZOLOMIDE. [Suspect]
     Active Substance: TEMOZOLOMIDE
     Dosage: 150 MG/M2, ACTUAL DAILY DOSE 200 MG
     Route: 048
     Dates: start: 20081223, end: 20081225
  3. TEMOZOLOMIDE. [Suspect]
     Active Substance: TEMOZOLOMIDE
     Dosage: 150 MG/M2, ACTUAL DAILY DOSE 200 MG
     Route: 048
     Dates: start: 20090609, end: 20090612
  4. ZOFRAN [Concomitant]
     Active Substance: ONDANSETRON HYDROCHLORIDE
     Dosage: UNK
     Route: 048
     Dates: start: 20090317, end: 20090319
  5. ZOFRAN [Concomitant]
     Active Substance: ONDANSETRON HYDROCHLORIDE
     Dosage: UNK
     Route: 048
     Dates: start: 20091103, end: 20091107
  6. ZOFRAN [Concomitant]
     Active Substance: ONDANSETRON HYDROCHLORIDE
     Dosage: UNK
     Route: 048
     Dates: start: 20091201, end: 20091205
  7. TEMOZOLOMIDE. [Suspect]
     Active Substance: TEMOZOLOMIDE
     Dosage: 150 MG/M2, ACTUAL DAILY DOSE 200 MG
     Route: 048
     Dates: start: 20061129, end: 20061203
  8. TEMOZOLOMIDE. [Suspect]
     Active Substance: TEMOZOLOMIDE
     Dosage: 150 MG/M2, ACTUAL DAILY DOSE 200 MG
     Route: 048
     Dates: start: 20070613, end: 20070617
  9. TEMOZOLOMIDE. [Suspect]
     Active Substance: TEMOZOLOMIDE
     Dosage: 150 MG/M2, ACTUAL DAILY DOSE 200 MG
     Route: 048
     Dates: start: 20070808, end: 20070811
  10. TEMOZOLOMIDE. [Suspect]
     Active Substance: TEMOZOLOMIDE
     Dosage: 150 MG/M2, ACTUAL DAILY DOSE 200 MG
     Route: 048
     Dates: start: 20080902, end: 20080905
  11. TEMOZOLOMIDE. [Suspect]
     Active Substance: TEMOZOLOMIDE
     Dosage: 150 MG/M2, ACTUAL DAILY DOSE 200 MG
     Route: 048
     Dates: start: 20090317, end: 20090319
  12. TEMOZOLOMIDE. [Suspect]
     Active Substance: TEMOZOLOMIDE
     Dosage: 150 MG/M2, ACTUAL DAILY DOSE 200 MG
     Route: 048
     Dates: start: 20091229, end: 20100102
  13. TEMOZOLOMIDE. [Suspect]
     Active Substance: TEMOZOLOMIDE
     Dosage: 150 MG/M2, ACTUAL DAILY DOSE 200 MG
     Route: 048
     Dates: start: 20100125, end: 20100129
  14. ZOFRAN [Concomitant]
     Active Substance: ONDANSETRON HYDROCHLORIDE
     Dosage: UNK
     Route: 048
     Dates: start: 20090120, end: 20090123
  15. ZOFRAN [Concomitant]
     Active Substance: ONDANSETRON HYDROCHLORIDE
     Dosage: UNK
     Route: 048
     Dates: start: 20090707, end: 20090709
  16. TEMOZOLOMIDE. [Suspect]
     Active Substance: TEMOZOLOMIDE
     Dosage: 150 MG/M2, ACTUAL DAILY DOSE 200 MG
     Route: 048
     Dates: start: 20081029, end: 20081101
  17. TEMOZOLOMIDE. [Suspect]
     Active Substance: TEMOZOLOMIDE
     Dosage: 150 MG/M2, ACTUAL DAILY DOSE 200 MG
     Route: 048
     Dates: start: 20091006, end: 20091010
  18. TEMOZOLOMIDE. [Suspect]
     Active Substance: TEMOZOLOMIDE
     Dosage: 150 MG/M2, ACTUAL DAILY DOSE 200 MG
     Route: 048
     Dates: start: 20091103, end: 20091107
  19. ZOFRAN [Concomitant]
     Active Substance: ONDANSETRON HYDROCHLORIDE
     Dosage: UNK
     Route: 048
     Dates: start: 20091229, end: 20100102
  20. TEMOZOLOMIDE. [Suspect]
     Active Substance: TEMOZOLOMIDE
     Dosage: 150 MG/M2, ACTUAL DAILY DOSE 200 MG
     Route: 048
     Dates: start: 20070124, end: 20070128
  21. TEMOZOLOMIDE. [Suspect]
     Active Substance: TEMOZOLOMIDE
     Dosage: 150 MG/M2, ACTUAL DAILY DOSE 200 MG
     Route: 048
     Dates: start: 20070516, end: 20070520
  22. TEMOZOLOMIDE. [Suspect]
     Active Substance: TEMOZOLOMIDE
     Dosage: 150 MG/M2, ACTUAL DAILY DOSE 200 MG
     Route: 048
     Dates: start: 20071029, end: 20071102
  23. TEMOZOLOMIDE. [Suspect]
     Active Substance: TEMOZOLOMIDE
     Dosage: 150 MG/M2, ACTUAL DAILY DOSE 200 MG
     Route: 048
     Dates: start: 20080317, end: 20080320
  24. TEMOZOLOMIDE. [Suspect]
     Active Substance: TEMOZOLOMIDE
     Dosage: 150 MG/M2, ACTUAL DAILY DOSE 200 MG
     Route: 048
     Dates: start: 20080512, end: 20080515
  25. TEMOZOLOMIDE. [Suspect]
     Active Substance: TEMOZOLOMIDE
     Dosage: 150 MG/M2, ACTUAL DAILY DOSE 200 MG
     Route: 048
     Dates: start: 20090217, end: 20090219
  26. TEMOZOLOMIDE. [Suspect]
     Active Substance: TEMOZOLOMIDE
     Dosage: 150 MG/M2, ACTUAL DAILY DOSE 200 MG
     Route: 048
     Dates: start: 20090512, end: 20090514
  27. TEMOZOLOMIDE. [Suspect]
     Active Substance: TEMOZOLOMIDE
     Dosage: 150 MG/M2, ACTUAL DAILY DOSE 200 MG
     Route: 048
     Dates: start: 20090707, end: 20090709
  28. ZOFRAN [Concomitant]
     Active Substance: ONDANSETRON HYDROCHLORIDE
     Dosage: UNK
     Route: 048
     Dates: start: 20090609, end: 20090612
  29. ZOFRAN [Concomitant]
     Active Substance: ONDANSETRON HYDROCHLORIDE
     Dosage: UNK
     Route: 048
     Dates: start: 20091006, end: 20091010
  30. ZOFRAN [Concomitant]
     Active Substance: ONDANSETRON HYDROCHLORIDE
     Dosage: UNK
     Route: 048
     Dates: start: 20100323, end: 20100327
  31. TEMOZOLOMIDE. [Suspect]
     Active Substance: TEMOZOLOMIDE
     Dosage: 150 MG/M2, ACTUAL DAILY DOSE 200 MG
     Route: 048
     Dates: start: 20070221, end: 20070225
  32. TEMOZOLOMIDE. [Suspect]
     Active Substance: TEMOZOLOMIDE
     Dosage: 150 MG/M2, ACTUAL DAILY DOSE 200 MG
     Route: 048
     Dates: start: 20070321, end: 20070325
  33. TEMOZOLOMIDE. [Suspect]
     Active Substance: TEMOZOLOMIDE
     Dosage: 150 MG/M2, ACTUAL DAILY DOSE 200 MG
     Route: 048
     Dates: start: 20070418, end: 20070422
  34. TEMOZOLOMIDE. [Suspect]
     Active Substance: TEMOZOLOMIDE
     Dosage: 150 MG/M2, ACTUAL DAILY DOSE 200 MG
     Route: 048
     Dates: start: 20070711, end: 20070714
  35. TEMOZOLOMIDE. [Suspect]
     Active Substance: TEMOZOLOMIDE
     Dosage: 150 MG/M2, ACTUAL DAILY DOSE 200 MG
     Route: 048
     Dates: start: 20080609, end: 20080612
  36. ZOFRAN [Concomitant]
     Active Substance: ONDANSETRON HYDROCHLORIDE
     Dosage: UNK
     Route: 048
     Dates: start: 20080902, end: 20080905
  37. ZOFRAN [Concomitant]
     Active Substance: ONDANSETRON HYDROCHLORIDE
     Dosage: UNK
     Route: 048
     Dates: start: 20081001, end: 20081006
  38. ZOFRAN [Concomitant]
     Active Substance: ONDANSETRON HYDROCHLORIDE
     Dosage: UNK
     Route: 048
     Dates: start: 20081124, end: 20081126
  39. ZOFRAN [Concomitant]
     Active Substance: ONDANSETRON HYDROCHLORIDE
     Dosage: UNK
     Route: 048
     Dates: start: 20081223, end: 20081225
  40. TEMOZOLOMIDE. [Suspect]
     Active Substance: TEMOZOLOMIDE
     Dosage: 150 MG/M2, ACTUAL DAILY DOSE 200 MG
     Route: 048
     Dates: start: 20061227, end: 20061231
  41. TEMOZOLOMIDE. [Suspect]
     Active Substance: TEMOZOLOMIDE
     Dosage: 150 MG/M2, ACTUAL DAILY DOSE 200 MG
     Route: 048
     Dates: start: 20070903, end: 20070905
  42. TEMOZOLOMIDE. [Suspect]
     Active Substance: TEMOZOLOMIDE
     Dosage: 150 MG/M2, ACTUAL DAILY DOSE 200 MG
     Route: 048
     Dates: start: 20090908, end: 20090912
  43. ZOFRAN [Concomitant]
     Active Substance: ONDANSETRON HYDROCHLORIDE
     Dosage: UNK
     Route: 048
     Dates: start: 20081029, end: 20081101
  44. ZOFRAN [Concomitant]
     Active Substance: ONDANSETRON HYDROCHLORIDE
     Dosage: UNK
     Route: 048
     Dates: start: 20090414, end: 20090416
  45. ZOFRAN [Concomitant]
     Active Substance: ONDANSETRON HYDROCHLORIDE
     Dosage: UNK
     Route: 048
     Dates: start: 20090512, end: 20090514
  46. ZOFRAN [Concomitant]
     Active Substance: ONDANSETRON HYDROCHLORIDE
     Dosage: UNK
     Route: 048
     Dates: start: 20100223, end: 20100227
  47. TEMOZOLOMIDE. [Suspect]
     Active Substance: TEMOZOLOMIDE
     Dosage: 150 MG/M2, ACTUAL DAILY DOSE 200 MG
     Route: 048
     Dates: start: 20071126, end: 20071129
  48. TEMOZOLOMIDE. [Suspect]
     Active Substance: TEMOZOLOMIDE
     Dosage: 150 MG/M2, ACTUAL DAILY DOSE 200 MG
     Route: 048
     Dates: start: 20080121, end: 20080124
  49. TEMOZOLOMIDE. [Suspect]
     Active Substance: TEMOZOLOMIDE
     Dosage: 150 MG/M2, ACTUAL DAILY DOSE 200 MG
     Route: 048
     Dates: start: 20080218, end: 20080221
  50. TEMOZOLOMIDE. [Suspect]
     Active Substance: TEMOZOLOMIDE
     Dosage: 150 MG/M2, ACTUAL DAILY DOSE 200 MG
     Route: 048
     Dates: start: 20080414, end: 20080417
  51. TEMOZOLOMIDE. [Suspect]
     Active Substance: TEMOZOLOMIDE
     Dosage: 150 MG/M2, ACTUAL DAILY DOSE 200 MG
     Route: 048
     Dates: start: 20081001, end: 20081006
  52. TEMOZOLOMIDE. [Suspect]
     Active Substance: TEMOZOLOMIDE
     Dosage: 150 MG/M2, ACTUAL DAILY DOSE 200 MG
     Route: 048
     Dates: start: 20091201, end: 20091205
  53. TEMOZOLOMIDE. [Suspect]
     Active Substance: TEMOZOLOMIDE
     Dosage: 150 MG/M2, ACTUAL DAILY DOSE 200 MG
     Route: 048
     Dates: start: 20100323, end: 20100327
  54. ZOFRAN [Concomitant]
     Active Substance: ONDANSETRON HYDROCHLORIDE
     Dosage: UNK
     Route: 048
     Dates: start: 20090217, end: 20090219
  55. ZOFRAN [Concomitant]
     Active Substance: ONDANSETRON HYDROCHLORIDE
     Dosage: UNK
     Route: 048
     Dates: start: 20100420, end: 20100424
  56. TEMOZOLOMIDE. [Suspect]
     Active Substance: TEMOZOLOMIDE
     Indication: ANAPLASTIC ASTROCYTOMA
     Dosage: 75 MG/M2, ACTUAL DAILY DOSE 100 MG
     Route: 048
     Dates: start: 20060919, end: 20061031
  57. TEMOZOLOMIDE. [Suspect]
     Active Substance: TEMOZOLOMIDE
     Dosage: 150 MG/M2, ACTUAL DAILY DOSE 200 MG
     Route: 048
     Dates: start: 20071219, end: 20071222
  58. TEMOZOLOMIDE. [Suspect]
     Active Substance: TEMOZOLOMIDE
     Dosage: 150 MG/M2, ACTUAL DAILY DOSE 200 MG
     Route: 048
     Dates: start: 20080702, end: 20080705
  59. TEMOZOLOMIDE. [Suspect]
     Active Substance: TEMOZOLOMIDE
     Dosage: 150 MG/M2, ACTUAL DAILY DOSE 200 MG
     Route: 048
     Dates: start: 20080805, end: 20080807
  60. TEMOZOLOMIDE. [Suspect]
     Active Substance: TEMOZOLOMIDE
     Dosage: 150 MG/M2, ACTUAL DAILY DOSE 200 MG
     Route: 048
     Dates: start: 20081124, end: 20081126
  61. TEMOZOLOMIDE. [Suspect]
     Active Substance: TEMOZOLOMIDE
     Dosage: 150 MG/M2, ACTUAL DAILY DOSE 200 MG
     Route: 048
     Dates: start: 20090120, end: 20090123
  62. TEMOZOLOMIDE. [Suspect]
     Active Substance: TEMOZOLOMIDE
     Dosage: 150 MG/M2, ACTUAL DAILY DOSE 200 MG
     Route: 048
     Dates: start: 20090414, end: 20090416
  63. TEMOZOLOMIDE. [Suspect]
     Active Substance: TEMOZOLOMIDE
     Dosage: 150 MG/M2, ACTUAL DAILY DOSE 200 MG
     Route: 048
     Dates: start: 20100223, end: 20100227
  64. TEMOZOLOMIDE. [Suspect]
     Active Substance: TEMOZOLOMIDE
     Dosage: 200 MG/M2, QD
     Route: 048
     Dates: start: 20100420, end: 20100423
  65. GASTER [Concomitant]
     Active Substance: FAMOTIDINE
     Indication: PROPHYLAXIS
     Dosage: DAILY DOSE UNKNOWN
     Route: 048
     Dates: start: 20070611
  66. ZOFRAN [Concomitant]
     Active Substance: ONDANSETRON HYDROCHLORIDE
     Indication: PROPHYLAXIS
     Dosage: UNK
     Route: 048
     Dates: start: 20061202
  67. ZOFRAN [Concomitant]
     Active Substance: ONDANSETRON HYDROCHLORIDE
     Dosage: UNK
     Route: 048
     Dates: start: 20090908, end: 20090912

REACTIONS (37)
  - Nausea [Recovered/Resolved]
  - Lymphocyte count decreased [Recovered/Resolved]
  - Vomiting [Recovering/Resolving]
  - Vomiting [Recovering/Resolving]
  - Vomiting [Recovering/Resolving]
  - Nausea [Recovered/Resolved]
  - Nausea [Recovering/Resolving]
  - Vomiting [Recovering/Resolving]
  - Vomiting [Recovering/Resolving]
  - Nausea [Recovered/Resolved]
  - Nausea [Recovering/Resolving]
  - Nausea [Recovering/Resolving]
  - Nausea [Recovered/Resolved]
  - Nausea [Recovered/Resolved]
  - Vomiting [Recovered/Resolved]
  - Nausea [Recovering/Resolving]
  - Vomiting [Recovering/Resolving]
  - Nausea [Recovered/Resolved]
  - Nausea [Recovered/Resolved]
  - Nausea [Recovered/Resolved]
  - Nausea [Recovered/Resolved]
  - Disease progression [Fatal]
  - Lymphocyte count decreased [Not Recovered/Not Resolved]
  - Nausea [Recovering/Resolving]
  - Nausea [Recovering/Resolving]
  - Nausea [Recovering/Resolving]
  - Nausea [Recovering/Resolving]
  - Nausea [Recovered/Resolved]
  - Red blood cell count decreased [Recovered/Resolved]
  - Nausea [Recovering/Resolving]
  - Vomiting [Recovering/Resolving]
  - Nausea [Recovering/Resolving]
  - Nausea [Recovered/Resolved]
  - Nausea [Recovering/Resolving]
  - Vomiting [Recovering/Resolving]
  - Vomiting [Recovering/Resolving]
  - Nausea [Recovered/Resolved]

NARRATIVE: CASE EVENT DATE: 20061030
